FAERS Safety Report 15504863 (Version 1)
Quarter: 2018Q4

REPORT INFORMATION
  Report Type: Spontaneous
  Country: US (occurrence: US)
  Receive Date: 20181009
  Receipt Date: 20181009
  Transmission Date: 20190205
  Serious: No
  Sender: FDA-Public Use
  Company Number: None

PATIENT
  Age: 59 Year
  Sex: Female
  Weight: 58.5 kg

DRUGS (4)
  1. VALSARTAN TABS 320MG; GENERIC FOR DIOVAN TABS [Suspect]
     Active Substance: VALSARTAN
     Indication: HYPERTENSION
     Dosage: ?          QUANTITY:1 TABLET(S);?
     Route: 048
     Dates: start: 20180629, end: 20180821
  2. IODINE. [Concomitant]
     Active Substance: IODINE
  3. INSULIN [Concomitant]
     Active Substance: INSULIN NOS
  4. DIGOXIN. [Concomitant]
     Active Substance: DIGOXIN

REACTIONS (9)
  - Recalled product administered [None]
  - Malaise [None]
  - Product contamination [None]
  - Oesophageal pain [None]
  - Alopecia [None]
  - Diarrhoea [None]
  - Oesophageal spasm [None]
  - Urticaria [None]
  - Product quality issue [None]

NARRATIVE: CASE EVENT DATE: 20180629
